FAERS Safety Report 6857306-6 (Version None)
Quarter: 2010Q3

REPORT INFORMATION
  Report Type: 
  Country: None (occurrence: None)
  Receive Date: 20100719
  Receipt Date: 20100323
  Transmission Date: 20110219
  Serious: Yes (Death)
  Sender: FDA-Public Use
  Company Number: DE-ASTRAZENECA-2010SE12726

PATIENT
  Age: 76 Year
  Sex: Female

DRUGS (10)
  1. ANASTROZOLE [Suspect]
     Indication: BREAST CANCER
     Route: 048
     Dates: start: 20060118
  2. ASPIRIN [Suspect]
     Route: 048
  3. NORVASC [Suspect]
     Route: 048
  4. GLIBENCLAMIDE [Suspect]
     Route: 048
  5. METFORMIN [Suspect]
  6. HYDROCHLOROTHIAZIDE [Suspect]
     Route: 048
  7. CALCIUM WITH VITAMIN D [Suspect]
     Indication: OSTEOPOROSIS
     Route: 048
  8. COZAAR [Suspect]
  9. SYNTHROID [Suspect]
  10. BONIVA [Suspect]
     Indication: OSTEOPOROSIS
     Dates: start: 20060103

REACTIONS (1)
  - SUDDEN DEATH [None]
